FAERS Safety Report 23273281 (Version 2)
Quarter: 2023Q4

REPORT INFORMATION
  Report Type: Report from Study
  Country: MX (occurrence: MX)
  Receive Date: 20231207
  Receipt Date: 20231208
  Transmission Date: 20240110
  Serious: Yes (Other)
  Sender: FDA-Public Use
  Company Number: MX-NALPROPION PHARMACEUTICALS INC.-MX-2023CUR005097

PATIENT
  Sex: Female

DRUGS (1)
  1. BUPROPION HYDROCHLORIDE\NALTREXONE HYDROCHLORIDE [Suspect]
     Active Substance: BUPROPION HYDROCHLORIDE\NALTREXONE HYDROCHLORIDE
     Indication: Obesity
     Dosage: 3 DOSAGE FORM, 1 IN 1 DAY
     Route: 048
     Dates: start: 20230825

REACTIONS (1)
  - Knee operation [Unknown]
